FAERS Safety Report 21221321 (Version 1)
Quarter: 2022Q3

REPORT INFORMATION
  Report Type: Spontaneous
  Country: SK (occurrence: SK)
  Receive Date: 20220817
  Receipt Date: 20220817
  Transmission Date: 20221026
  Serious: Yes (Death, Other)
  Sender: FDA-Public Use
  Company Number: SK-AMGEN-SVKSP2022138353

PATIENT

DRUGS (2)
  1. FILGRASTIM [Suspect]
     Active Substance: FILGRASTIM
     Indication: Prophylaxis
     Dosage: 480 MICROGRAM, FOR 10 DAYS, ON DAYS 6, 7, 9-14, 16 AND 17
     Route: 058
  2. PEGFILGRASTIM [Suspect]
     Active Substance: PEGFILGRASTIM
     Indication: Prophylaxis
     Dosage: (6 MG/0.6 ML) ON DAY 6
     Route: 058

REACTIONS (8)
  - Death [Fatal]
  - Testicular germ cell tumour [Fatal]
  - Extragonadal primary germ cell tumour [Fatal]
  - Retroperitoneal cancer [Fatal]
  - Metastases to the mediastinum [Fatal]
  - Metastases to central nervous system [Fatal]
  - Neoplasm malignant [Fatal]
  - Febrile neutropenia [Unknown]
